FAERS Safety Report 8271148-9 (Version None)
Quarter: 2012Q1

REPORT INFORMATION
  Report Type: 
  Country: None (occurrence: None)
  Receive Date: 20120308
  Receipt Date: 20120126
  Transmission Date: 20120608
  Serious: Yes (Other)
  Sender: FDA-Public Use
  Company Number: PHEH2012US002341

PATIENT
  Age: 47 Year
  Sex: Male
  Weight: 115.6 kg

DRUGS (3)
  1. PROLIXIN [Concomitant]
  2. FANAPT [Suspect]
     Dosage: ORAL
     Route: 048
  3. COGENTIN [Concomitant]

REACTIONS (2)
  - HEART RATE INCREASED [None]
  - BLOOD PRESSURE DECREASED [None]
